FAERS Safety Report 19366628 (Version 1)
Quarter: 2021Q2

REPORT INFORMATION
  Report Type: Spontaneous
  Country: FR (occurrence: FR)
  Receive Date: 20210603
  Receipt Date: 20210603
  Transmission Date: 20210717
  Serious: Yes (Hospitalization, Other)
  Sender: FDA-Public Use
  Company Number: FR-ACCORD-227270

PATIENT
  Age: 62 Year
  Sex: Female
  Weight: 82 kg

DRUGS (12)
  1. DULOXETINE. [Suspect]
     Active Substance: DULOXETINE
     Indication: PRODUCT USED FOR UNKNOWN INDICATION
     Dosage: ONCE A DAY (IN MORNING)
  2. LEVOTHYROXINE. [Concomitant]
     Active Substance: LEVOTHYROXINE
     Dosage: ONCE A DAY (IN THE MORNING)
  3. QUETIAPINE. [Suspect]
     Active Substance: QUETIAPINE
     Indication: PRODUCT USED FOR UNKNOWN INDICATION
     Dosage: UNK, INCREASED PROGRESSIVELY TO 400 MG
  4. ACEBUTOLOL [Suspect]
     Active Substance: ACEBUTOLOL
     Indication: PRODUCT USED FOR UNKNOWN INDICATION
     Dosage: ONCE A DAY (IN THE MORNING
  5. FLUOXETINE [Suspect]
     Active Substance: FLUOXETINE HYDROCHLORIDE
     Indication: PRODUCT USED FOR UNKNOWN INDICATION
     Dosage: DAILY
  6. ALPRAZOLAM. [Suspect]
     Active Substance: ALPRAZOLAM
     Indication: PRODUCT USED FOR UNKNOWN INDICATION
     Dosage: ONCE A DAY (IN THE MORNING, A MIDDAY AND IN THE EVENING
  7. RISPERIDONE. [Concomitant]
     Active Substance: RISPERIDONE
     Dates: start: 2020, end: 2020
  8. THERALENE [Concomitant]
     Active Substance: TRIMEPRAZINE
  9. APIXABAN [Concomitant]
     Active Substance: APIXABAN
     Dosage: ONCE A DAY (IN THE MORNING AND IN THE EVENING)
  10. LANSOPRAZOLE. [Suspect]
     Active Substance: LANSOPRAZOLE
     Indication: PRODUCT USED FOR UNKNOWN INDICATION
     Dosage: ONCE A DAY (IN THE MORNING AND IN THE EVENING
  11. AMLODIPINE [Suspect]
     Active Substance: AMLODIPINE BESYLATE
     Indication: PRODUCT USED FOR UNKNOWN INDICATION
     Dosage: ONCE A DAY (IN THE MORNING
  12. MIANSERIN [Suspect]
     Active Substance: MIANSERIN
     Indication: PRODUCT USED FOR UNKNOWN INDICATION
     Dosage: ONCE A DAY (IN THE EVENING)

REACTIONS (7)
  - Drug ineffective [Unknown]
  - Dysuria [Recovered/Resolved]
  - Pollakiuria [Not Recovered/Not Resolved]
  - Anxiety [Recovered/Resolved]
  - Morbid thoughts [Recovered/Resolved]
  - Suicidal ideation [Recovered/Resolved]
  - Micturition urgency [Unknown]

NARRATIVE: CASE EVENT DATE: 2020
